FAERS Safety Report 14788852 (Version 2)
Quarter: 2018Q2

REPORT INFORMATION
  Report Type: Spontaneous
  Country: US (occurrence: US)
  Receive Date: 20180423
  Receipt Date: 20180511
  Transmission Date: 20180711
  Serious: Yes (Hospitalization, Other)
  Sender: FDA-Public Use
  Company Number: US-AMGEN-USASP2018053294

PATIENT
  Age: 55 Year
  Sex: Male

DRUGS (1)
  1. IMLYGIC [Suspect]
     Active Substance: TALIMOGENE LAHERPAREPVEC
     Indication: MALIGNANT MELANOMA
     Dosage: UNK
     Route: 026

REACTIONS (8)
  - Mental status changes [Unknown]
  - Central nervous system lesion [Unknown]
  - Lethargy [Unknown]
  - Somnolence [Unknown]
  - Depressed level of consciousness [Unknown]
  - Disorientation [Unknown]
  - Disorganised speech [Unknown]
  - Pyrexia [Unknown]

NARRATIVE: CASE EVENT DATE: 20180417
